FAERS Safety Report 4767697-8 (Version None)
Quarter: 2005Q3

REPORT INFORMATION
  Report Type: 
  Country: None (occurrence: None)
  Receive Date: 20050912
  Receipt Date: 20050826
  Transmission Date: 20060218
  Serious: Yes (Death)
  Sender: FDA-Public Use
  Company Number: CN-2005-017760

PATIENT
  Age: 60 Year
  Sex: Female

DRUGS (3)
  1. FLUDARA [Suspect]
     Indication: LYMPHOPLASMACYTOID LYMPHOMA/IMMUNOCYTOMA STAGE IV
     Dosage: 50 MG, 1X/DAY, INTRAVENOUS
     Route: 042
     Dates: start: 20050823, end: 20050824
  2. DEXAMETHASONE [Concomitant]
  3. MITOXANTRONE [Concomitant]

REACTIONS (14)
  - CARDIOPULMONARY FAILURE [None]
  - CHILLS [None]
  - CONDUCTION DISORDER [None]
  - HEART RATE INCREASED [None]
  - METABOLIC ACIDOSIS [None]
  - ORTHOPNOEA [None]
  - PULMONARY EMBOLISM [None]
  - PYREXIA [None]
  - RALES [None]
  - RESPIRATORY ACIDOSIS [None]
  - SINOATRIAL BLOCK [None]
  - TUMOUR LYSIS SYNDROME [None]
  - VENTRICULAR ARRHYTHMIA [None]
  - WHEEZING [None]
